FAERS Safety Report 5021283-3 (Version None)
Quarter: 2006Q2

REPORT INFORMATION
  Report Type: 
  Country: None (occurrence: None)
  Receive Date: 20060608
  Receipt Date: 20060605
  Transmission Date: 20061013
  Serious: Yes (Life-Threatening, Hospitalization)
  Sender: FDA-Public Use
  Company Number: BR-GLAXOSMITHKLINE-A0608103A

PATIENT
  Age: 2 Year
  Sex: Female
  Weight: 13 kg

DRUGS (2)
  1. CLAVULIN [Suspect]
     Indication: RESPIRATORY TRACT CONGESTION
     Dosage: 2.5ML THREE TIMES PER DAY
     Route: 048
     Dates: start: 20050517, end: 20050524
  2. CLENIL COMPOSITUM [Concomitant]
     Dates: start: 20050517, end: 20050524

REACTIONS (4)
  - DIARRHOEA [None]
  - DRUG INEFFECTIVE [None]
  - PHARMACEUTICAL PRODUCT COMPLAINT [None]
  - PNEUMONIA [None]
